FAERS Safety Report 22297173 (Version 2)
Quarter: 2023Q2

REPORT INFORMATION
  Report Type: Spontaneous
  Country: US (occurrence: US)
  Receive Date: 20230509
  Receipt Date: 20230622
  Transmission Date: 20230722
  Serious: No
  Sender: FDA-Public Use
  Company Number: US-BRISTOL-MYERS SQUIBB COMPANY-2023-065354

PATIENT
  Age: 52 Year
  Sex: Male

DRUGS (1)
  1. ELIQUIS [Suspect]
     Active Substance: APIXABAN
     Indication: Aortic valve replacement
     Dosage: DOSE : ONE TABLET;     FREQ : TWICE DAILY
     Route: 048
     Dates: start: 20230414

REACTIONS (1)
  - Off label use [Unknown]
